FAERS Safety Report 21859555 (Version 8)
Quarter: 2023Q1

REPORT INFORMATION
  Report Type: Spontaneous
  Country: US (occurrence: US)
  Receive Date: 20230113
  Receipt Date: 20230315
  Transmission Date: 20230418
  Serious: Yes (Other)
  Sender: FDA-Public Use
  Company Number: US-PFIZER INC-202300011470

PATIENT
  Age: 70 Year
  Sex: Female

DRUGS (1)
  1. NICOTROL [Suspect]
     Active Substance: NICOTINE
     Dosage: 10 MG (168 COUNT 1 MONTH)

REACTIONS (3)
  - Lung neoplasm malignant [Unknown]
  - Poor quality device used [Unknown]
  - Device defective [Unknown]
